FAERS Safety Report 4564572-9 (Version None)
Quarter: 2005Q1

REPORT INFORMATION
  Report Type: 
  Country: None (occurrence: None)
  Receive Date: 20050126
  Receipt Date: 20041223
  Transmission Date: 20050727
  Serious: Yes (Death)
  Sender: FDA-Public Use
  Company Number: ENTC2004-0247

PATIENT
  Sex: 0

DRUGS (8)
  1. STALEVO 100 [Suspect]
     Dates: start: 20040401
  2. ZOLDEM [Concomitant]
  3. EFFORTIL [Concomitant]
  4. SEROQUEL [Concomitant]
  5. FOSAMAX [Concomitant]
  6. VIOXX [Concomitant]
  7. MAXI CALC [Concomitant]
  8. MIRTABENE [Concomitant]

REACTIONS (1)
  - NO ADVERSE DRUG EFFECT [None]
